FAERS Safety Report 10696753 (Version 3)
Quarter: 2015Q1

REPORT INFORMATION
  Report Type: Spontaneous
  Country: US (occurrence: US)
  Receive Date: 20150108
  Receipt Date: 20150205
  Transmission Date: 20150721
  Serious: Yes (Death)
  Sender: FDA-Public Use
  Company Number: US-009507513-1501USA000281

PATIENT
  Sex: Male

DRUGS (6)
  1. PREDNISONE. [Concomitant]
     Active Substance: PREDNISONE
     Dosage: UNKNOWN
     Route: 048
  2. PROGRAF [Concomitant]
     Active Substance: TACROLIMUS\TACROLIMUS ANHYDROUS
     Dosage: UNKNOWN
     Route: 048
  3. LEXAPRO [Concomitant]
     Active Substance: ESCITALOPRAM OXALATE
     Dosage: UNKNOWN
     Route: 048
  4. PEGASYS [Suspect]
     Active Substance: PEGINTERFERON ALFA-2A
     Dosage: UNK
  5. NEUPOGEN [Concomitant]
     Active Substance: FILGRASTIM
     Dosage: STRENGTH 300/0.5 (UNITS UNSPECIFIED)
  6. VICTRELIS [Suspect]
     Active Substance: BOCEPREVIR
     Dosage: 4 DF, Q8H, 4 CAPSULES BY MOUTH EVERY 8 HOURS WITH FOOD
     Route: 048

REACTIONS (1)
  - Myelodysplastic syndrome [Fatal]
